FAERS Safety Report 8301811-2 (Version None)
Quarter: 2012Q2

REPORT INFORMATION
  Report Type: 
  Country: None (occurrence: None)
  Receive Date: 20120420
  Receipt Date: 20120417
  Transmission Date: 20120825
  Serious: Yes (Disabling, Other)
  Sender: FDA-Public Use
  Company Number: CA-TEVA-334109USA

PATIENT
  Age: 77 Year
  Sex: Female
  Weight: 60.382 kg

DRUGS (8)
  1. ACETAMINOPHEN [Concomitant]
  2. COAL TAR [Concomitant]
  3. GABAPENTIN [Concomitant]
     Route: 048
  4. HYDROCHLOROTHIAZIDE [Concomitant]
     Route: 048
  5. TRAZODONE HCL [Suspect]
     Dosage: 50 MILLIGRAM;
     Route: 048
  6. ATORVASTATIN CALCIUM [Concomitant]
     Route: 048
  7. LORAZEPAM [Concomitant]
     Route: 048
  8. HEPARTICHAUT [Concomitant]

REACTIONS (17)
  - ASTHENIA [None]
  - ANXIETY [None]
  - WITHDRAWAL SYNDROME [None]
  - ABDOMINAL PAIN UPPER [None]
  - DYSPEPSIA [None]
  - PAIN OF SKIN [None]
  - FATIGUE [None]
  - EYE DISCHARGE [None]
  - HEPATIC PAIN [None]
  - DRY THROAT [None]
  - GASTROOESOPHAGEAL REFLUX DISEASE [None]
  - VISUAL ACUITY REDUCED [None]
  - VOMITING [None]
  - PANIC ATTACK [None]
  - SLEEP DISORDER [None]
  - WEIGHT INCREASED [None]
  - OEDEMA PERIPHERAL [None]
